FAERS Safety Report 13849391 (Version 1)
Quarter: 2017Q3

REPORT INFORMATION
  Report Type: Spontaneous
  Country: US (occurrence: US)
  Receive Date: 20170809
  Receipt Date: 20170809
  Transmission Date: 20171127
  Serious: Yes (Other)
  Sender: FDA-Public Use
  Company Number: US-LUPIN (EUROPE) LIMITED-E2B_00007463

PATIENT
  Age: 56 Year
  Sex: Female
  Weight: 50.35 kg

DRUGS (2)
  1. LEVOTHYROXINE. [Concomitant]
     Active Substance: LEVOTHYROXINE
     Indication: PRODUCT USED FOR UNKNOWN INDICATION
     Dosage: 25 ?G,UNK,UNKNOWN
     Route: 065
  2. LEVETIRACETAM EXTENDED RELEASE TABLET USP, 500 MG [Suspect]
     Active Substance: LEVETIRACETAM
     Indication: SEIZURE
     Dosage: 500 MG,TID,
     Route: 048
     Dates: start: 20161207

REACTIONS (4)
  - Medication residue present [Recovered/Resolved]
  - Drug ineffective [Unknown]
  - Seizure [Recovering/Resolving]
  - Diarrhoea [Recovered/Resolved]

NARRATIVE: CASE EVENT DATE: 20170211
